FAERS Safety Report 5924872-4 (Version None)
Quarter: 2008Q4

REPORT INFORMATION
  Report Type: 
  Country: None (occurrence: None)
  Receive Date: 20081017
  Receipt Date: 20081017
  Transmission Date: 20090506
  Serious: Yes (Hospitalization)
  Sender: FDA-Public Use
  Company Number: None

PATIENT
  Age: 58 Year
  Sex: Male
  Weight: 79 kg

DRUGS (2)
  1. 5- AZACYTIDINE 150MG [Suspect]
     Indication: PROSTATE CANCER METASTATIC
     Dosage: 150MG DAY 1 + 15 IV
     Route: 042
     Dates: start: 20080910, end: 20080924
  2. ERLOTINIB 150MG GENETECH [Suspect]
     Indication: PROSTATE CANCER METASTATIC
     Dosage: 150MG Q DAY PO
     Route: 048
     Dates: start: 20080910, end: 20081007

REACTIONS (10)
  - BLOOD CULTURE POSITIVE [None]
  - JOINT SWELLING [None]
  - MALIGNANT NEOPLASM PROGRESSION [None]
  - METASTASES TO BONE [None]
  - METASTASES TO SPINE [None]
  - METASTASES TO THORAX [None]
  - PAIN [None]
  - PYREXIA [None]
  - SPINAL CORD COMPRESSION [None]
  - STAPHYLOCOCCAL INFECTION [None]
